FAERS Safety Report 7042719-2 (Version None)
Quarter: 2010Q4

REPORT INFORMATION
  Report Type: 
  Country: None (occurrence: None)
  Receive Date: 20101013
  Receipt Date: 20100616
  Transmission Date: 20110411
  Serious: No
  Sender: FDA-Public Use
  Company Number: US-ASTRAZENECA-2010SE18600

PATIENT
  Sex: Female

DRUGS (2)
  1. SYMBICORT [Suspect]
     Indication: CHRONIC OBSTRUCTIVE PULMONARY DISEASE
     Dosage: 160/4.5 UG, 2 PUFFS BID
     Route: 055
  2. SYMBICORT [Suspect]
     Dosage: 160/4.5 UG, 1 PUFFS BID
     Route: 055

REACTIONS (2)
  - CHRONIC OBSTRUCTIVE PULMONARY DISEASE [None]
  - INCORRECT DOSE ADMINISTERED [None]
